FAERS Safety Report 20684604 (Version 1)
Quarter: 2022Q2

REPORT INFORMATION
  Report Type: Spontaneous
  Country: US (occurrence: US)
  Receive Date: 20220407
  Receipt Date: 20220407
  Transmission Date: 20220721
  Serious: No
  Sender: FDA-Public Use
  Company Number: US-PFIZER INC-202101806917

PATIENT
  Age: 47 Year
  Sex: Female

DRUGS (1)
  1. IBRANCE [Suspect]
     Active Substance: PALBOCICLIB
     Dosage: DAILY DAYS 1 TO 21 , 7 DAYS OFF FOR EACH 28 DAY CYCLE
     Route: 048
     Dates: start: 20211112

REACTIONS (2)
  - Aphthous ulcer [Unknown]
  - Stomatitis [Unknown]

NARRATIVE: CASE EVENT DATE: 20210101
